FAERS Safety Report 12653545 (Version 2)
Quarter: 2016Q3

REPORT INFORMATION
  Report Type: Report from Study
  Country: US (occurrence: US)
  Receive Date: 20160815
  Receipt Date: 20160919
  Transmission Date: 20161109
  Serious: Yes (Death, Hospitalization, Other)
  Sender: FDA-Public Use
  Company Number: US-009507513-1608USA006977

PATIENT
  Age: 85 Year
  Sex: Female

DRUGS (1)
  1. KEYTRUDA [Suspect]
     Active Substance: PEMBROLIZUMAB
     Dosage: 117 MG, Q3W
     Route: 042
     Dates: start: 2016, end: 2016

REACTIONS (3)
  - Disease progression [Unknown]
  - Adverse event [Unknown]
  - Death [Fatal]

NARRATIVE: CASE EVENT DATE: 2016
